FAERS Safety Report 19519235 (Version 2)
Quarter: 2021Q3

REPORT INFORMATION
  Report Type: Spontaneous
  Country: MX (occurrence: MX)
  Receive Date: 20210712
  Receipt Date: 20210716
  Transmission Date: 20211014
  Serious: Yes (Hospitalization, Other)
  Sender: FDA-Public Use
  Company Number: MX-GLAXOSMITHKLINE-MX2021AMR147480

PATIENT
  Sex: Female

DRUGS (1)
  1. NIRAPARIB [Suspect]
     Active Substance: NIRAPARIB
     Indication: PRODUCT USED FOR UNKNOWN INDICATION
     Dosage: UNK

REACTIONS (10)
  - Colon cancer [Unknown]
  - Disease progression [Unknown]
  - Asthenia [Recovering/Resolving]
  - Abdominal adhesions [Unknown]
  - Ileostomy [Recovered/Resolved]
  - Bone disorder [Unknown]
  - Neoplasm malignant [Unknown]
  - Intestinal obstruction [Recovered/Resolved]
  - Gastrointestinal carcinoma [Unknown]
  - Metastases to peritoneum [Unknown]

NARRATIVE: CASE EVENT DATE: 20210703
